FAERS Safety Report 13641363 (Version 2)
Quarter: 2017Q4

REPORT INFORMATION
  Report Type: Report from Study
  Country: None (occurrence: US)
  Receive Date: 20170612
  Receipt Date: 20171027
  Transmission Date: 20180320
  Serious: Yes (Other)
  Sender: FDA-Public Use
  Company Number: US-ABBVIE-16K-163-1582254-00

PATIENT
  Sex: Male
  Weight: 124.85 kg

DRUGS (2)
  1. HUMIRA [Suspect]
     Active Substance: ADALIMUMAB
     Indication: UVEITIS
     Route: 058
     Dates: end: 20170201
  2. HUMIRA [Suspect]
     Active Substance: ADALIMUMAB
     Indication: ANKYLOSING SPONDYLITIS
     Route: 058
     Dates: start: 20151019, end: 201603

REACTIONS (6)
  - Eye pain [Unknown]
  - Ankylosing spondylitis [Unknown]
  - Musculoskeletal pain [Unknown]
  - Suicide attempt [Unknown]
  - Cataract [Not Recovered/Not Resolved]
  - Depression [Unknown]
